FAERS Safety Report 12507510 (Version 1)
Quarter: 2016Q2

REPORT INFORMATION
  Report Type: Spontaneous
  Country: US (occurrence: None)
  Receive Date: 20160628
  Receipt Date: 20160628
  Transmission Date: 20160815
  Serious: Yes (Disabling)
  Sender: FDA-Public Use
  Company Number: None

PATIENT
  Age: 21 Year
  Sex: Female
  Weight: 158.76 kg

DRUGS (1)
  1. NEXPLANON [Suspect]
     Active Substance: ETONOGESTREL
     Dates: start: 201503

REACTIONS (7)
  - Vision blurred [None]
  - Depression [None]
  - Device dislocation [None]
  - Hypoaesthesia [None]
  - Weight increased [None]
  - Migraine [None]
  - Anxiety [None]

NARRATIVE: CASE EVENT DATE: 20160101
